FAERS Safety Report 14471420 (Version 1)
Quarter: 2018Q1

REPORT INFORMATION
  Report Type: Report from Study
  Country: AU (occurrence: AU)
  Receive Date: 20180131
  Receipt Date: 20180131
  Transmission Date: 20180509
  Serious: Yes (Hospitalization, Other)
  Sender: FDA-Public Use
  Company Number: PHHY2016AU017494

PATIENT
  Age: 64 Year
  Sex: Male

DRUGS (2)
  1. CLOZARIL [Suspect]
     Active Substance: CLOZAPINE
     Indication: SCHIZOPHRENIA
     Dosage: 675 MG, UNK
     Route: 048
     Dates: start: 20010118
  2. OLANZAPINE. [Suspect]
     Active Substance: OLANZAPINE
     Indication: PRODUCT USED FOR UNKNOWN INDICATION
     Dosage: 30 MG, UNK
     Route: 065

REACTIONS (14)
  - Pneumonia [Unknown]
  - Tardive dyskinesia [Unknown]
  - Schizophrenia [Unknown]
  - Agitation [Unknown]
  - White blood cell count decreased [Recovered/Resolved]
  - Abnormal behaviour [Unknown]
  - Neutropenia [Unknown]
  - Dysarthria [Unknown]
  - Ill-defined disorder [Unknown]
  - Neutrophil count decreased [Recovered/Resolved]
  - Neutrophil count decreased [Recovered/Resolved]
  - Hallucination, auditory [Unknown]
  - White blood cell count decreased [Recovered/Resolved]
  - Speech disorder [Unknown]

NARRATIVE: CASE EVENT DATE: 20160209
